FAERS Safety Report 5959078-6 (Version None)
Quarter: 2008Q4

REPORT INFORMATION
  Report Type: 
  Country: None (occurrence: None)
  Receive Date: 20081120
  Receipt Date: 20071105
  Transmission Date: 20090506
  Serious: No
  Sender: FDA-Public Use
  Company Number: A0688503A

PATIENT
  Age: 16 Year
  Sex: Male

DRUGS (4)
  1. WELLBUTRIN SR [Suspect]
     Indication: DEPRESSION
     Dosage: 150MG TWICE PER DAY
     Route: 048
     Dates: start: 20070919
  2. MIRALAX [Suspect]
     Indication: CONSTIPATION
     Route: 048
     Dates: start: 20071004
  3. STRATTERA [Concomitant]
  4. UNKNOWN MEDICATION [Concomitant]

REACTIONS (3)
  - PRODUCT QUALITY ISSUE [None]
  - RASH [None]
  - RASH MACULO-PAPULAR [None]
